FAERS Safety Report 16951912 (Version 1)
Quarter: 2019Q4

REPORT INFORMATION
  Report Type: Spontaneous
  Country: AU (occurrence: AU)
  Receive Date: 20191023
  Receipt Date: 20191023
  Transmission Date: 20200122
  Serious: Yes (Other)
  Sender: FDA-Public Use
  Company Number: AU-AMGEN-AUSSP2019168520

PATIENT
  Age: 57 Year
  Sex: Female

DRUGS (2)
  1. REPATHA [Suspect]
     Active Substance: EVOLOCUMAB
     Indication: BLOOD CHOLESTEROL INCREASED
     Dosage: 420 MILLIGRAM, QMO
     Route: 058
     Dates: start: 2019
  2. LIPIDIL [Concomitant]
     Active Substance: FENOFIBRATE
     Dosage: 145 MILLIGRAM

REACTIONS (5)
  - Malaise [Unknown]
  - Drug dose omission by device [Unknown]
  - Injection site haemorrhage [Unknown]
  - Appendicectomy [Unknown]
  - Device issue [Unknown]

NARRATIVE: CASE EVENT DATE: 20190815
